FAERS Safety Report 18670182 (Version 2)
Quarter: 2020Q4

REPORT INFORMATION
  Report Type: Spontaneous
  Country: US (occurrence: US)
  Receive Date: 20201228
  Receipt Date: 20201230
  Transmission Date: 20210114
  Serious: Yes (Other)
  Sender: FDA-Public Use
  Company Number: US-PFIZER INC-2020508926

PATIENT
  Sex: Male

DRUGS (3)
  1. ASPIRINE [Suspect]
     Active Substance: ASPIRIN
     Dosage: UNK
  2. METOPROLOL TARTRATE. [Suspect]
     Active Substance: METOPROLOL TARTRATE
     Dosage: UNK
  3. ELIQUIS [Suspect]
     Active Substance: APIXABAN
     Dosage: TWICE A DAY (MORNING AND EVENING)
     Route: 065

REACTIONS (5)
  - Dizziness [Unknown]
  - Hypotension [Unknown]
  - Extra dose administered [Unknown]
  - Fatigue [Unknown]
  - Mental impairment [Unknown]

NARRATIVE: CASE EVENT DATE: 202012
